FAERS Safety Report 8597616-8 (Version None)
Quarter: 2012Q3

REPORT INFORMATION
  Report Type: 
  Country: None (occurrence: None)
  Receive Date: 20120816
  Receipt Date: 20070927
  Transmission Date: 20120928
  Serious: Yes (Other)
  Sender: FDA-Public Use
  Company Number: CO-PFIZER INC-2012199695

PATIENT
  Age: 61 Year
  Sex: Female

DRUGS (4)
  1. QUINAPRIL AND HYDROCHLOROTHIAZIDE [Suspect]
     Dosage: 20MG/12.5MG PER DAY
     Route: 048
  2. LIPITOR [Suspect]
     Dosage: 20 MG, 1X/DAY
     Route: 048
  3. NORVASC [Suspect]
     Dosage: 10 MG, 1X/DAY
     Route: 048
  4. ACETYLSALICYLIC ACID [Concomitant]
     Dosage: 100 MG, 1X/DAY
     Route: 048

REACTIONS (1)
  - HYPERTENSIVE EMERGENCY [None]
